FAERS Safety Report 14769453 (Version 2)
Quarter: 2018Q2

REPORT INFORMATION
  Report Type: Spontaneous
  Country: US (occurrence: US)
  Receive Date: 20180417
  Receipt Date: 20180420
  Transmission Date: 20180711
  Serious: Yes (Other)
  Sender: FDA-Public Use
  Company Number: US-SA-2018SA106565

PATIENT
  Age: 78 Year
  Sex: Female

DRUGS (2)
  1. LANTUS SOLOSTAR [Suspect]
     Active Substance: INSULIN GLARGINE
     Indication: TYPE 2 DIABETES MELLITUS
     Dosage: DOSE: 12 UNITS IN THE MORNING AND 5 UNITS IN THE EVENING
     Route: 051
     Dates: start: 2017
  2. SOLOSTAR [Suspect]
     Active Substance: DEVICE

REACTIONS (5)
  - Blood glucose increased [Unknown]
  - Myocardial infarction [Recovering/Resolving]
  - Product use issue [Unknown]
  - Nervousness [Unknown]
  - Depression [Unknown]

NARRATIVE: CASE EVENT DATE: 20180209
